FAERS Safety Report 9907249 (Version 1)
Quarter: 2014Q1

REPORT INFORMATION
  Report Type: Report from Study
  Country: CN (occurrence: CN)
  Receive Date: 20140218
  Receipt Date: 20140218
  Transmission Date: 20141002
  Serious: Yes (Other)
  Sender: FDA-Public Use
  Company Number: CN-GILEAD-2014-0094419

PATIENT
  Sex: 0

DRUGS (2)
  1. ADEFOVIR DIPIVOXIL [Suspect]
     Indication: CHRONIC HEPATITIS B
     Route: 065
  2. ENTECAVIR [Concomitant]
     Indication: CHRONIC HEPATITIS B
     Route: 065

REACTIONS (5)
  - Viral mutation identified [Unknown]
  - Hepatic enzyme increased [Unknown]
  - Viral load increased [Unknown]
  - Viral mutation identified [Unknown]
  - Drug ineffective [Unknown]
